FAERS Safety Report 8030655-4 (Version None)
Quarter: 2012Q1

REPORT INFORMATION
  Report Type: 
  Country: None (occurrence: None)
  Receive Date: 20120109
  Receipt Date: 20120105
  Transmission Date: 20120608
  Serious: Yes (Hospitalization, Other)
  Sender: FDA-Public Use
  Company Number: US-JNJFOC-20100804926

PATIENT
  Sex: Male

DRUGS (9)
  1. CIPROFLOXACIN [Suspect]
     Indication: PNEUMONIA
     Route: 065
  2. LEVAQUIN [Suspect]
     Indication: BRONCHITIS
     Route: 048
  3. STEROIDS NOS [Suspect]
     Indication: ARTHRALGIA
     Route: 065
  4. LEVAQUIN [Suspect]
     Indication: PNEUMONIA
     Route: 048
  5. HYDROCODONE [Concomitant]
     Indication: PAIN MANAGEMENT
     Dates: start: 19990101
  6. LEVAQUIN [Suspect]
     Route: 048
     Dates: start: 20070101, end: 20070101
  7. PROZAC [Concomitant]
     Indication: ANTIDEPRESSANT THERAPY
     Dates: start: 19990101
  8. LEVAQUIN [Suspect]
     Route: 048
     Dates: start: 20070101, end: 20070101
  9. DIAZEPAM [Concomitant]
     Indication: ANXIETY

REACTIONS (3)
  - TENDON RUPTURE [None]
  - BURSITIS [None]
  - ROTATOR CUFF SYNDROME [None]
